FAERS Safety Report 15695160 (Version 1)
Quarter: 2018Q4

REPORT INFORMATION
  Report Type: Spontaneous
  Country: US (occurrence: US)
  Receive Date: 20181206
  Receipt Date: 20181206
  Transmission Date: 20190205
  Serious: No
  Sender: FDA-Public Use
  Company Number: US-ENDO PHARMACEUTICALS INC-2018-036296

PATIENT
  Sex: Male

DRUGS (3)
  1. XIAFLEX [Suspect]
     Active Substance: COLLAGENASE CLOSTRIDIUM HISTOLYTICUM
     Dosage: 0.58 MG, CYCLE 1, SECOND INJECTION
     Route: 026
     Dates: start: 20180104
  2. XIAFLEX [Suspect]
     Active Substance: COLLAGENASE CLOSTRIDIUM HISTOLYTICUM
     Indication: PEYRONIE^S DISEASE
     Dosage: 0.58 MG, CYCLE 1, FIRST INJECTION
     Route: 026
     Dates: start: 20180102
  3. XIAFLEX [Suspect]
     Active Substance: COLLAGENASE CLOSTRIDIUM HISTOLYTICUM
     Dosage: 0.58 MG, CYCLE 2, FIRST INJECTION
     Route: 026
     Dates: start: 20180306, end: 20180306

REACTIONS (4)
  - Penile contusion [Recovering/Resolving]
  - Blood blister [Recovering/Resolving]
  - Condition aggravated [Unknown]
  - Peyronie^s disease [Unknown]

NARRATIVE: CASE EVENT DATE: 2018
